FAERS Safety Report 8344032-X (Version None)
Quarter: 2012Q2

REPORT INFORMATION
  Report Type: 
  Country: None (occurrence: None)
  Receive Date: 20120504
  Receipt Date: 20120424
  Transmission Date: 20120825
  Serious: Yes (Death)
  Sender: FDA-Public Use
  Company Number: DKLU1078583

PATIENT
  Weight: 0.69 kg

DRUGS (2)
  1. NEOPROFEN [Suspect]
     Indication: PATENT DUCTUS ARTERIOSUS
  2. SURFACTANT (LUNG SURFACTANTS) [Concomitant]

REACTIONS (7)
  - RIGHT ATRIAL DILATATION [None]
  - HYPOXIA [None]
  - RIGHT VENTRICULAR SYSTOLIC PRESSURE INCREASED [None]
  - PULMONARY HYPERTENSION [None]
  - TRICUSPID VALVE INCOMPETENCE [None]
  - NEONATAL HYPOTENSION [None]
  - DEATH NEONATAL [None]
